FAERS Safety Report 23326559 (Version 1)
Quarter: 2023Q4

REPORT INFORMATION
  Report Type: Spontaneous
  Country: CH (occurrence: CH)
  Receive Date: 20231221
  Receipt Date: 20231221
  Transmission Date: 20240110
  Serious: No
  Sender: FDA-Public Use
  Company Number: CH-PHARMAMAR-2023PM000453

PATIENT
  Age: 68 Year
  Sex: Male
  Weight: 86 kg

DRUGS (10)
  1. ZEPZELCA [Suspect]
     Active Substance: LURBINECTEDIN
     Indication: Bladder cancer
     Dosage: 6.2 MILLIGRAM, D1Q3W
     Route: 042
     Dates: start: 20230622, end: 20230810
  2. ELIQUIS [Concomitant]
     Active Substance: APIXABAN
     Dosage: 2.5 MILLIGRAM, BID
     Route: 048
  3. OLMESARTAN SANDOZ [Concomitant]
     Dosage: 10 MILLIGRAM, QD
     Route: 048
  4. ROSUVASTATIN CALCIUM [Concomitant]
     Active Substance: ROSUVASTATIN CALCIUM
     Dosage: 10 MILLIGRAM, QD
     Route: 048
  5. PANTOZOL [Concomitant]
     Active Substance: PANTOPRAZOLE SODIUM
     Dosage: 20 MILLIGRAM, QD
     Route: 048
  6. MINERAL OIL [Concomitant]
     Active Substance: MINERAL OIL
     Dosage: 500 MILLILITER, BID
     Route: 048
  7. MALVEOL [Concomitant]
     Dosage: 100 MILLILITER
     Route: 002
  8. HYPERICUM PERFORATUM WHOLE [Concomitant]
     Active Substance: HYPERICUM PERFORATUM WHOLE
     Dosage: 250 MILLIGRAM, QD
     Route: 048
  9. BEPANTHEN [PANTHENOL] [Concomitant]
     Dosage: 30 GRAM
  10. PASPERTIN K [METOCLOPRAMIDE] [Concomitant]
     Indication: Nausea
     Dosage: 10 MILLIGRAM, PRN

REACTIONS (1)
  - Off label use [Unknown]
